FAERS Safety Report 24085516 (Version 1)
Quarter: 2024Q3

REPORT INFORMATION
  Report Type: Report from Study
  Country: US (occurrence: US)
  Receive Date: 20240712
  Receipt Date: 20240712
  Transmission Date: 20241016
  Serious: No
  Sender: BIOVITRUM
  Company Number: US-BIOVITRUM-2024-US-008052

PATIENT
  Age: 44 Year
  Sex: Female

DRUGS (1)
  1. KINERET [Suspect]
     Active Substance: ANAKINRA
     Indication: Pericarditis
     Dosage: DAILY
     Route: 058
     Dates: end: 20240604

REACTIONS (9)
  - Injection site reaction [Unknown]
  - Fatigue [Unknown]
  - Off label use [Recovered/Resolved]
  - Hypersensitivity [Unknown]
  - Product dose omission issue [Unknown]
  - Heart rate increased [Unknown]
  - Feeling abnormal [Unknown]
  - Pericarditis [Unknown]
  - Condition aggravated [Unknown]
